FAERS Safety Report 14080594 (Version 2)
Quarter: 2017Q4

REPORT INFORMATION
  Report Type: Spontaneous
  Country: ES (occurrence: ES)
  Receive Date: 20171012
  Receipt Date: 20171024
  Transmission Date: 20180321
  Serious: Yes (Other)
  Sender: FDA-Public Use
  Company Number: PHHY2017ES147132

PATIENT
  Age: 4 Year
  Sex: Male

DRUGS (1)
  1. TRIAMCINOLONE ACETONIDE. [Suspect]
     Active Substance: TRIAMCINOLONE ACETONIDE
     Indication: PRODUCT USED FOR UNKNOWN INDICATION
     Dosage: UNK
     Route: 047

REACTIONS (5)
  - Retinal artery embolism [Recovering/Resolving]
  - Intraocular haematoma [Recovering/Resolving]
  - Quadrantanopia [Unknown]
  - Retinal oedema [Recovered/Resolved]
  - Visual field defect [Recovering/Resolving]
